FAERS Safety Report 5492139-7 (Version None)
Quarter: 2007Q4

REPORT INFORMATION
  Report Type: 
  Country: None (occurrence: None)
  Receive Date: 20071022
  Receipt Date: 20071012
  Transmission Date: 20080405
  Serious: Yes (Death, Other)
  Sender: FDA-Public Use
  Company Number: HQWYE064311MAR05

PATIENT
  Sex: Female
  Weight: 58.11 kg

DRUGS (3)
  1. PREMPRO [Suspect]
     Indication: MENOPAUSAL SYMPTOMS
     Dosage: 0.625MG/2.5MG
     Route: 048
     Dates: start: 19981119, end: 20020401
  2. PREMPRO [Suspect]
     Indication: HOT FLUSH
  3. MEDROXYPROGESTERONE ACETATE [Suspect]
     Indication: MENOPAUSAL SYMPTOMS

REACTIONS (1)
  - BREAST CANCER METASTATIC [None]
